FAERS Safety Report 5372647-X (Version None)
Quarter: 2007Q2

REPORT INFORMATION
  Report Type: 
  Country: None (occurrence: None)
  Receive Date: 20070626
  Receipt Date: 20070620
  Transmission Date: 20071010
  Serious: Yes (Hospitalization)
  Sender: FDA-Public Use
  Company Number: 056-C5013-07061028

PATIENT
  Age: 78 Year
  Sex: Female
  Weight: 51 kg

DRUGS (2)
  1. CC-5013 (LENALIDOMIDE) (CAPSULES) [Suspect]
     Indication: MYELODYSPLASTIC SYNDROME
     Dosage: 5 GM, 1 IN 1 D, ORAL
     Route: 048
     Dates: start: 20070526
  2. GRANOCYTE [Concomitant]

REACTIONS (3)
  - APLASIA [None]
  - PYREXIA [None]
  - THROMBOCYTOPENIA [None]
